FAERS Safety Report 18998748 (Version 1)
Quarter: 2021Q1

REPORT INFORMATION
  Report Type: Spontaneous
  Country: US (occurrence: US)
  Receive Date: 20210311
  Receipt Date: 20210311
  Transmission Date: 20210420
  Serious: Yes (Death, Hospitalization, Other)
  Sender: FDA-Public Use
  Company Number: US-UPSHER-SMITH LABORATORIES, LLC-2021USL00182

PATIENT
  Sex: Male

DRUGS (3)
  1. UNSPECIFIED MEDICATIONS [Suspect]
     Active Substance: UNSPECIFIED INGREDIENT
     Indication: UNEVALUABLE EVENT
  2. AMIODARONE HYDROCHLORIDE. [Suspect]
     Active Substance: AMIODARONE HYDROCHLORIDE
     Indication: ATRIAL FIBRILLATION
     Dosage: UNK
     Route: 048
     Dates: start: 2011
  3. UNSPECIFIED MEDICATIONS [Suspect]
     Active Substance: UNSPECIFIED INGREDIENT
     Indication: LUNG DISORDER
     Dosage: UNK
     Dates: start: 2016, end: 2016

REACTIONS (8)
  - Blindness [Unknown]
  - Cataract nuclear [Unknown]
  - Chest pain [Unknown]
  - Unevaluable event [Unknown]
  - Asthenia [Unknown]
  - Off label use [Unknown]
  - Lung disorder [Unknown]
  - Respiratory failure [Fatal]

NARRATIVE: CASE EVENT DATE: 2011
